FAERS Safety Report 16420693 (Version 1)
Quarter: 2019Q3

REPORT INFORMATION
  Report Type: Spontaneous
  Country: US (occurrence: US)
  Receive Date: 20190611
  Receipt Date: 20190611
  Transmission Date: 20191004
  Serious: Yes (Life-Threatening, Hospitalization, Disabling)
  Sender: FDA-Public Use
  Company Number: None

PATIENT
  Age: 31 Year
  Sex: Female
  Weight: 58.5 kg

DRUGS (1)
  1. BOTOX [Suspect]
     Active Substance: ONABOTULINUMTOXINA
     Indication: MIGRAINE
     Dates: start: 20171024, end: 20171024

REACTIONS (15)
  - Eyelid ptosis [None]
  - Dyspnoea [None]
  - Dry mouth [None]
  - Anxiety [None]
  - Fatigue [None]
  - Apnoea [None]
  - Diarrhoea [None]
  - Oesophageal hypomotility [None]
  - Dysphagia [None]
  - Panic attack [None]
  - Choking [None]
  - Dry eye [None]
  - Neck pain [None]
  - Muscular weakness [None]
  - Nausea [None]

NARRATIVE: CASE EVENT DATE: 20171024
